FAERS Safety Report 8551372-8 (Version None)
Quarter: 2012Q3

REPORT INFORMATION
  Report Type: 
  Country: None (occurrence: None)
  Receive Date: 20120730
  Receipt Date: 20111118
  Transmission Date: 20120928
  Serious: No
  Sender: FDA-Public Use
  Company Number: US-ALLERGAN-1115233US

PATIENT
  Sex: Female

DRUGS (3)
  1. LUMIGAN [Suspect]
     Indication: GLAUCOMA
     Dosage: 2 GTT, QHS
     Route: 047
     Dates: start: 20111117
  2. AZOPT [Concomitant]
     Indication: GLAUCOMA
     Dosage: 2 UNK, UNK
     Route: 047
  3. COMBIGAN [Concomitant]
     Indication: GLAUCOMA
     Dosage: 2 GTT, BID
     Route: 047

REACTIONS (1)
  - SCLERAL HYPERAEMIA [None]
